FAERS Safety Report 6644721-9 (Version None)
Quarter: 2010Q1

REPORT INFORMATION
  Report Type: 
  Country: None (occurrence: None)
  Receive Date: 20100317
  Receipt Date: 20100310
  Transmission Date: 20100710
  Serious: Yes (Other)
  Sender: FDA-Public Use
  Company Number: 2010SP015196

PATIENT
  Sex: Female

DRUGS (1)
  1. PEGINTERFERON ALFA-2B [Suspect]
     Indication: HEPATITIS C

REACTIONS (8)
  - APLASTIC ANAEMIA [None]
  - CARDIAC FAILURE [None]
  - DISEASE RECURRENCE [None]
  - HEPATIC FIBROSIS [None]
  - HEPATITIS C [None]
  - PLATELET COUNT DECREASED [None]
  - TROPONIN INCREASED [None]
  - WHITE BLOOD CELL COUNT DECREASED [None]
